FAERS Safety Report 7413773-0 (Version None)
Quarter: 2011Q2

REPORT INFORMATION
  Report Type: 
  Country: None (occurrence: None)
  Receive Date: 20110413
  Receipt Date: 20110405
  Transmission Date: 20111010
  Serious: Yes (Hospitalization, Other)
  Sender: FDA-Public Use
  Company Number: US-SANOFI-AVENTIS-A03200701986

PATIENT
  Age: 65 Year
  Sex: Male
  Weight: 117 kg

DRUGS (43)
  1. PLAVIX [Suspect]
     Indication: CORONARY ARTERY DISEASE
     Dosage: UNIT DOSE: 75 MG
     Route: 048
     Dates: start: 20010101
  2. PLAVIX [Suspect]
     Route: 065
     Dates: start: 19991019
  3. ASPIRIN [Suspect]
     Route: 065
     Dates: end: 20060816
  4. LASIX [Concomitant]
  5. FUROSEMIDE [Concomitant]
  6. AVINZA [Concomitant]
  7. NYSTATIN [Concomitant]
  8. DOCUSATE [Concomitant]
  9. PREDNISONE [Concomitant]
  10. LEVOTHYROXINE [Concomitant]
  11. VITAMIN PREPARATION COMPOUND [Concomitant]
  12. GLIPIZIDE [Concomitant]
  13. WARFARIN [Concomitant]
  14. ALLOPURINOL [Concomitant]
  15. PROMETHAZINE [Concomitant]
  16. PLAVIX [Suspect]
     Dosage: UNIT DOSE: 75 MG
     Route: 048
     Dates: start: 20050101, end: 20060824
  17. PLAVIX [Suspect]
     Route: 065
     Dates: start: 19991019
  18. OMEPRAZOLE [Concomitant]
  19. MULTI-VITAMINS [Concomitant]
  20. VYTORIN [Concomitant]
  21. ATORVASTATIN [Concomitant]
  22. NOVOLOG [Concomitant]
  23. VITAMIN D [Concomitant]
  24. CELEBREX [Concomitant]
  25. PLAVIX [Suspect]
     Dosage: UNIT DOSE: 75 MG
     Route: 048
     Dates: start: 20050101, end: 20060824
  26. LASIX [Concomitant]
  27. AVANDIA [Concomitant]
  28. ANDROGEL [Concomitant]
     Dosage: 6 PUMPS DAILY
  29. DIGOXIN [Concomitant]
  30. COZAAR [Concomitant]
  31. COZAAR [Concomitant]
  32. COREG [Concomitant]
  33. COLCHICINE [Concomitant]
  34. ESOMEPRAZOLE [Concomitant]
  35. OXYCODONE HCL AND ACETAMINOPHEN [Concomitant]
  36. LANTUS [Concomitant]
  37. CADUET COMBINATION [Concomitant]
     Dosage: 5/10 MG
  38. ISOSORBIDE MONONITRATE [Concomitant]
  39. PLAVIX [Suspect]
     Dosage: UNIT DOSE: 75 MG
     Route: 048
     Dates: start: 20010101
  40. LEVOTHYROXINE [Concomitant]
  41. LEVOTHYROXINE [Concomitant]
  42. NITROGLYCERIN [Concomitant]
  43. ALTACE [Concomitant]

REACTIONS (21)
  - THROMBOTIC THROMBOCYTOPENIC PURPURA [None]
  - RENAL FAILURE ACUTE [None]
  - PLATELET COUNT DECREASED [None]
  - HYPOTENSION [None]
  - TOOTHACHE [None]
  - ROAD TRAFFIC ACCIDENT [None]
  - SOMNOLENCE [None]
  - GAIT DISTURBANCE [None]
  - DEEP VEIN THROMBOSIS [None]
  - DRUG HYPERSENSITIVITY [None]
  - DENTAL CARIES [None]
  - MUSCLE STRAIN [None]
  - HAEMOGLOBIN DECREASED [None]
  - ABDOMINAL PAIN UPPER [None]
  - DYSPNOEA EXERTIONAL [None]
  - PYREXIA [None]
  - MENTAL STATUS CHANGES [None]
  - ANGINA PECTORIS [None]
  - TOOTH DISORDER [None]
  - CARDIAC FAILURE CONGESTIVE [None]
  - PERIODONTAL DISEASE [None]
